FAERS Safety Report 14259884 (Version 1)
Quarter: 2017Q4

REPORT INFORMATION
  Report Type: Report from Study
  Country: US (occurrence: US)
  Receive Date: 20171207
  Receipt Date: 20171207
  Transmission Date: 20180321
  Serious: Yes (Hospitalization, Other)
  Sender: FDA-Public Use
  Company Number: US-GILEAD-2017-0308995

PATIENT
  Age: 70 Year
  Sex: Male

DRUGS (1)
  1. RANOLAZINE. [Suspect]
     Active Substance: RANOLAZINE
     Indication: ANGINA PECTORIS
     Dosage: UNK
     Route: 048
     Dates: start: 2014

REACTIONS (4)
  - Angina pectoris [Not Recovered/Not Resolved]
  - Vascular device user [Not Recovered/Not Resolved]
  - General physical condition abnormal [Not Recovered/Not Resolved]
  - Intentional product use issue [Not Recovered/Not Resolved]
